FAERS Safety Report 8847136 (Version 1)
Quarter: 2012Q4

REPORT INFORMATION
  Report Type: Spontaneous
  Country: US (occurrence: None)
  Receive Date: 20121017
  Receipt Date: 20121017
  Transmission Date: 20130627
  Serious: Yes (Hospitalization)
  Sender: FDA-Public Use
  Company Number: None

PATIENT
  Sex: Male
  Weight: 231.33 kg

DRUGS (15)
  1. CYTARABINE [Suspect]
  2. DAUNORUBICIN [Suspect]
  3. METHOTREXATE [Suspect]
  4. METHYLPREDNISOLONE [Suspect]
  5. PEG-L ASPARAGINASE [Suspect]
  6. VINCRISTINE SULFATE [Suspect]
  7. AMIODARONE [Concomitant]
  8. AMLODIPINE [Concomitant]
  9. DILTIAZEM [Concomitant]
  10. ENOXAPARIN [Concomitant]
  11. FUROSEMIDE [Concomitant]
  12. LEVOPHED [Concomitant]
  13. METOPROLOL [Concomitant]
  14. MICAFUNGIN [Concomitant]
  15. SOTOLOL [Concomitant]

REACTIONS (12)
  - Hepatotoxicity [None]
  - Staphylococcal infection [None]
  - Central nervous system infection [None]
  - Systemic candida [None]
  - Culture urine positive [None]
  - Septic shock [None]
  - Multi-organ failure [None]
  - Renal failure [None]
  - Acute hepatic failure [None]
  - Encephalopathy [None]
  - Cholestatic liver injury [None]
  - Hepatic steatosis [None]
